FAERS Safety Report 5899532-9 (Version None)
Quarter: 2008Q3

REPORT INFORMATION
  Report Type: 
  Country: None (occurrence: None)
  Receive Date: 20080925
  Receipt Date: 20080925
  Transmission Date: 20090109
  Serious: Yes (Other)
  Sender: FDA-Public Use
  Company Number: None

PATIENT
  Sex: Female
  Weight: 86 kg

DRUGS (1)
  1. BACTRIM DS [Suspect]
     Dosage: 1 PO BID
     Route: 048

REACTIONS (8)
  - ARTHROPOD BITE [None]
  - CELLULITIS [None]
  - CHILLS [None]
  - DRUG DOSE OMISSION [None]
  - HYPOTENSION [None]
  - PYREXIA [None]
  - RASH [None]
  - SKIN LESION [None]
